FAERS Safety Report 15728122 (Version 1)
Quarter: 2018Q4

REPORT INFORMATION
  Report Type: Report from Study
  Country: DE (occurrence: DE)
  Receive Date: 20181217
  Receipt Date: 20181217
  Transmission Date: 20190205
  Serious: Yes (Hospitalization, Other)
  Sender: FDA-Public Use
  Company Number: DE-ACCORD-065595

PATIENT
  Age: 82 Year
  Sex: Female
  Weight: 74 kg

DRUGS (6)
  1. FLUOROURACIL. [Suspect]
     Active Substance: FLUOROURACIL
     Indication: COLORECTAL CANCER METASTATIC
     Dosage: DOSE: 648-650 MG?ALSO RECEIVED AT DOSE OF 3890-3900 MG VIA IV ROUTE
     Route: 040
     Dates: start: 20171012
  2. PANITUMUMAB [Suspect]
     Active Substance: PANITUMUMAB
     Indication: COLORECTAL CANCER METASTATIC
     Dosage: 420 MG
     Route: 042
     Dates: start: 20171012
  3. FOLINIC ACID [Suspect]
     Active Substance: LEUCOVORIN
     Indication: COLORECTAL CANCER METASTATIC
     Dosage: 648-650 MG
     Route: 065
     Dates: start: 20171012
  4. IRINOTECAN [Suspect]
     Active Substance: IRINOTECAN
     Indication: COLORECTAL CANCER METASTATIC
     Dosage: 290 MG, UNK
     Route: 065
     Dates: start: 20171012
  5. LONQUEX [Concomitant]
     Active Substance: LIPEGFILGRASTIM
     Indication: PROPHYLAXIS
     Dosage: 6 MG, PER CYCLE
     Route: 058
     Dates: start: 20171116, end: 20171117
  6. DOXYCYCLIN RATIOPHARM [Concomitant]
     Indication: ACNE
     Dosage: 100 MG, BID
     Route: 048
     Dates: start: 20171012

REACTIONS (2)
  - Leukopenia [Recovering/Resolving]
  - Diarrhoea [Not Recovered/Not Resolved]

NARRATIVE: CASE EVENT DATE: 20171026
